FAERS Safety Report 17551177 (Version 1)
Quarter: 2020Q3

REPORT INFORMATION
  Report Type: Report from Study
  Country: ES (occurrence: ES)
  Receive Date: 20200317
  Receipt Date: 20200317
  Transmission Date: 20201105
  Serious: Yes (Hospitalization)
  Sender: FDA-Public Use
  Company Number: ES-JNJFOC-20191002303

PATIENT
  Age: 58 Year
  Sex: Female
  Weight: 71.8 kg

DRUGS (4)
  1. BORTEZOMIB. [Suspect]
     Active Substance: BORTEZOMIB
     Indication: AMYLOIDOSIS
     Route: 058
     Dates: start: 20190222, end: 20190809
  2. CYCLOPHOSPHAMIDE. [Suspect]
     Active Substance: CYCLOPHOSPHAMIDE
     Indication: AMYLOIDOSIS
     Route: 042
     Dates: start: 20190222, end: 20190809
  3. DEXAMETHASONE. [Suspect]
     Active Substance: DEXAMETHASONE
     Indication: AMYLOIDOSIS
     Route: 048
     Dates: start: 20190222, end: 20190810
  4. DARATUMUMAB [Suspect]
     Active Substance: DARATUMUMAB
     Indication: AMYLOIDOSIS
     Route: 058
     Dates: start: 20190222, end: 20190802

REACTIONS (1)
  - Delayed engraftment [Recovered/Resolved]

NARRATIVE: CASE EVENT DATE: 20190916
